FAERS Safety Report 11965199 (Version 1)
Quarter: 2016Q1

REPORT INFORMATION
  Report Type: Spontaneous
  Country: US (occurrence: None)
  Receive Date: 20160125
  Receipt Date: 20160125
  Transmission Date: 20160526
  Serious: No
  Sender: FDA-Public Use
  Company Number: None

PATIENT
  Age: 5 Year
  Sex: Female
  Weight: 18.14 kg

DRUGS (5)
  1. CHILDRENS MOTRIN [Concomitant]
     Active Substance: IBUPROFEN
  2. AMOXICILLIN. [Concomitant]
     Active Substance: AMOXICILLIN
  3. CHILDRENS MAPAP ACETAMINOPHEN [Suspect]
     Active Substance: ACETAMINOPHEN
     Indication: PYREXIA
     Dosage: 1 TEASPOON, AS NEEDED, TAKEN BY MOUTH
     Dates: start: 20160121, end: 20160122
  4. CHILDRENS BENADRYL ALLERGY [Concomitant]
     Active Substance: DIPHENHYDRAMINE HYDROCHLORIDE
  5. CHILDRENS MAPAP ACETAMINOPHEN [Suspect]
     Active Substance: ACETAMINOPHEN
     Indication: PAIN MANAGEMENT
     Dosage: 1 TEASPOON, AS NEEDED, TAKEN BY MOUTH
     Dates: start: 20160121, end: 20160122

REACTIONS (1)
  - Urticaria [None]

NARRATIVE: CASE EVENT DATE: 20160122
